FAERS Safety Report 11203741 (Version 1)
Quarter: 2015Q2

REPORT INFORMATION
  Report Type: Report from Study
  Country: US (occurrence: US)
  Receive Date: 20150619
  Receipt Date: 20150619
  Transmission Date: 20150821
  Serious: Yes (Hospitalization)
  Sender: FDA-Public Use
  Company Number: US-GILEAD-2015-0159246

PATIENT
  Age: 78 Year
  Sex: Female

DRUGS (2)
  1. ADCIRCA [Concomitant]
     Active Substance: TADALAFIL
     Dosage: UNK
  2. AMBRISENTAN [Suspect]
     Active Substance: AMBRISENTAN
     Indication: PRODUCT USED FOR UNKNOWN INDICATION
     Dosage: 10 MG, QD
     Route: 065
     Dates: start: 20120123

REACTIONS (8)
  - Dyspnoea [Unknown]
  - Contusion [Unknown]
  - Suture insertion [Unknown]
  - Cough [Unknown]
  - Musculoskeletal chest pain [Unknown]
  - Fall [Unknown]
  - Ligament sprain [Unknown]
  - Head injury [Unknown]
